FAERS Safety Report 11521650 (Version 1)
Quarter: 2015Q3

REPORT INFORMATION
  Report Type: Spontaneous
  Country: US (occurrence: US)
  Receive Date: 20150918
  Receipt Date: 20150918
  Transmission Date: 20151125
  Serious: No
  Sender: FDA-Public Use
  Company Number: US-ROCHE-704088

PATIENT
  Age: 55 Year
  Sex: Female

DRUGS (2)
  1. PEGASYS [Suspect]
     Active Substance: PEGINTERFERON ALFA-2A
     Indication: HEPATITIS C
     Dosage: PRE-FILLED SYRINGE; WEEK 12
     Route: 065
     Dates: start: 20100227, end: 20100821
  2. RIBAVIRIN. [Suspect]
     Active Substance: RIBAVIRIN
     Indication: HEPATITIS C
     Dosage: WEEK 12
     Route: 065
     Dates: start: 20100227, end: 20100821

REACTIONS (9)
  - Weight decreased [Unknown]
  - Alopecia [Not Recovered/Not Resolved]
  - Skin disorder [Unknown]
  - Anxiety [Unknown]
  - Irritability [Unknown]
  - Skin ulcer [Not Recovered/Not Resolved]
  - Depression [Unknown]
  - Emotional disorder [Unknown]
  - Fatigue [Unknown]

NARRATIVE: CASE EVENT DATE: 201004
